FAERS Safety Report 24444944 (Version 2)
Quarter: 2024Q4

REPORT INFORMATION
  Report Type: Report from Study
  Country: US (occurrence: US)
  Receive Date: 20241016
  Receipt Date: 20241017
  Transmission Date: 20250114
  Serious: No
  Sender: ROCHE
  Company Number: US-ROCHE-2854683

PATIENT
  Age: 46 Year
  Sex: Female

DRUGS (1)
  1. RITUXAN [Suspect]
     Active Substance: RITUXIMAB
     Indication: Demyelination
     Dosage: DATE OF SERVICE : 22/JUN/2021
     Route: 042

REACTIONS (2)
  - Off label use [Unknown]
  - No adverse event [Unknown]
